FAERS Safety Report 7298139-9 (Version None)
Quarter: 2011Q1

REPORT INFORMATION
  Report Type: 
  Country: None (occurrence: None)
  Receive Date: 20110214
  Receipt Date: 20110214
  Transmission Date: 20110831
  Serious: No
  Sender: FDA-Public Use
  Company Number: None

PATIENT
  Age: 48 Year
  Sex: Female

DRUGS (3)
  1. MOMETASONE FUROATE [Suspect]
     Indication: ECZEMA
     Dosage: TWICE DAILY TOPICALLY
     Route: 061
     Dates: start: 20100201
  2. FEXOFENADINE [Concomitant]
  3. MICROGESTIN 1.5/30 [Concomitant]

REACTIONS (2)
  - PRODUCT SIZE ISSUE [None]
  - SKIN IRRITATION [None]
